FAERS Safety Report 7818281-0 (Version None)
Quarter: 2011Q4

REPORT INFORMATION
  Report Type: 
  Country: None (occurrence: None)
  Receive Date: 20111017
  Receipt Date: 20111012
  Transmission Date: 20120403
  Serious: Yes (Death)
  Sender: FDA-Public Use
  Company Number: CA-ABBOTT-11P-028-0836710-00

PATIENT
  Age: 8 Month
  Sex: Female

DRUGS (17)
  1. HEPATITIS B VACCINE [Suspect]
     Indication: PRODUCT USED FOR UNKNOWN INDICATION
     Dosage: RECEIVED AT 6, 10 AND 14 WEEKS OF LIFE
  2. PYRAZINAMIDE [Concomitant]
     Indication: TUBERCULOSIS
  3. ZIDOVUDINE [Suspect]
     Indication: HIV INFECTION
  4. COTRIM [Concomitant]
     Indication: TUBERCULOSIS
  5. KALETRA [Suspect]
  6. NORVIR [Suspect]
     Indication: HIV INFECTION
  7. NORVIR [Suspect]
  8. RIFAMPIN [Concomitant]
     Indication: TUBERCULOSIS
  9. ZIDOVUDINE [Suspect]
  10. TICE BCG [Suspect]
     Indication: PRODUCT USED FOR UNKNOWN INDICATION
  11. KALETRA [Suspect]
     Indication: HIV INFECTION
  12. LAMIVUDINE [Suspect]
     Indication: HIV INFECTION
  13. LAMIVUDINE [Suspect]
  14. ETHAMBUTOL HYDROCHLORIDE [Concomitant]
     Indication: TUBERCULOSIS
  15. ISONIAZID [Concomitant]
     Indication: TUBERCULOSIS
  16. AMIKACIN [Concomitant]
     Indication: TUBERCULOSIS
     Dosage: USP
     Route: 030
  17. CIPROFLOXACIN [Concomitant]
     Indication: TUBERCULOSIS

REACTIONS (20)
  - BLOOD LACTATE DEHYDROGENASE INCREASED [None]
  - CONVULSION [None]
  - HEPATITIS B [None]
  - HAEMORRHAGE [None]
  - HEPATIC ENCEPHALOPATHY [None]
  - LYMPHADENITIS [None]
  - ACUTE HEPATIC FAILURE [None]
  - BRAIN OEDEMA [None]
  - ALANINE AMINOTRANSFERASE INCREASED [None]
  - IMMUNE RECONSTITUTION SYNDROME [None]
  - TOXICITY TO VARIOUS AGENTS [None]
  - VACCINATION FAILURE [None]
  - CONDITION AGGRAVATED [None]
  - COAGULOPATHY [None]
  - BOVINE TUBERCULOSIS [None]
  - BLOOD BILIRUBIN INCREASED [None]
  - LIVER FUNCTION TEST ABNORMAL [None]
  - HEPATIC CIRRHOSIS [None]
  - HEPATIC FAILURE [None]
  - MENTAL STATUS CHANGES [None]
